FAERS Safety Report 8329921-4 (Version None)
Quarter: 2012Q2

REPORT INFORMATION
  Report Type: 
  Country: None (occurrence: None)
  Receive Date: 20120502
  Receipt Date: 20091117
  Transmission Date: 20120825
  Serious: No
  Sender: FDA-Public Use
  Company Number: US-TEVA-2009027178

PATIENT
  Sex: Female
  Weight: 56.75 kg

DRUGS (2)
  1. NUVIGIL [Suspect]
     Indication: FATIGUE
     Dosage: 150 MILLIGRAM;
     Route: 048
     Dates: start: 20091109, end: 20091114
  2. LUNESTA [Concomitant]
     Dates: start: 20091001

REACTIONS (4)
  - DISTURBANCE IN ATTENTION [None]
  - DISCOMFORT [None]
  - FEELING ABNORMAL [None]
  - DRUG EFFECT INCREASED [None]
